FAERS Safety Report 26145250 (Version 1)
Quarter: 2025Q4

REPORT INFORMATION
  Report Type: Spontaneous
  Country: CN (occurrence: CN)
  Receive Date: 20251211
  Receipt Date: 20251211
  Transmission Date: 20260118
  Serious: Yes (Hospitalization, Other)
  Sender: BAYER HEALTHCARE PHARMACEUTICALS INC.
  Company Number: CN-BAYER-2025A163117

PATIENT
  Age: 40 Year
  Sex: Female
  Weight: 79 kg

DRUGS (2)
  1. ULTRAVIST [Suspect]
     Active Substance: IOPROMIDE
     Indication: Computerised tomogram thorax
     Dosage: 50 ML, ONCE
     Route: 041
     Dates: start: 20251118, end: 20251118
  2. ULTRAVIST [Suspect]
     Active Substance: IOPROMIDE
     Indication: Pneumonia

REACTIONS (8)
  - Contrast media allergy [Recovering/Resolving]
  - Amaurosis [Recovered/Resolved]
  - Dizziness [Recovering/Resolving]
  - Nausea [Recovered/Resolved]
  - Palpitations [Recovered/Resolved]
  - Vomiting [Recovered/Resolved]
  - Blood pressure increased [Recovered/Resolved]
  - Heart rate increased [Recovered/Resolved]

NARRATIVE: CASE EVENT DATE: 20251118
